FAERS Safety Report 6608663-7 (Version None)
Quarter: 2010Q1

REPORT INFORMATION
  Report Type: 
  Country: None (occurrence: None)
  Receive Date: 20100222
  Receipt Date: 20100212
  Transmission Date: 20100710
  Serious: Yes (Other)
  Sender: FDA-Public Use
  Company Number: 006854

PATIENT
  Sex: Female

DRUGS (1)
  1. CIMZIA [Suspect]
     Dosage: (SUBCUTANEOUS)
     Route: 058
     Dates: start: 20090720

REACTIONS (5)
  - ARTHRALGIA [None]
  - BLEPHAROSPASM [None]
  - DIZZINESS [None]
  - FREQUENT BOWEL MOVEMENTS [None]
  - PSORIASIS [None]
